FAERS Safety Report 23527762 (Version 1)
Quarter: 2024Q1

REPORT INFORMATION
  Report Type: Other
  Country: US (occurrence: US)
  Receive Date: 20240215
  Receipt Date: 20240215
  Transmission Date: 20240410
  Serious: Yes (Death)
  Sender: FDA-Public Use
  Company Number: US-B.Braun Medical Inc.-2153263

PATIENT
  Age: 46 Year
  Sex: Female

DRUGS (11)
  1. MAGNESIUM SULFATE IN DEXTROSE [Suspect]
     Active Substance: MAGNESIUM SULFATE
  2. CALCIUM [Suspect]
     Active Substance: CALCIUM
  3. AMPHETAMINE [Suspect]
     Active Substance: AMPHETAMINE
  4. VITAMINS [Suspect]
     Active Substance: VITAMINS
  5. CYSTINE [Suspect]
     Active Substance: CYSTINE
  6. INOSITOL [Suspect]
     Active Substance: INOSITOL
  7. ACETYLCARNITINE [Suspect]
     Active Substance: ACETYLCARNITINE
  8. OXITRIPTAN [Suspect]
     Active Substance: OXITRIPTAN
  9. HOMEOPATHICS [Suspect]
     Active Substance: ARNICA MONTANA\CAUSTICUM\COMFREY ROOT\HOMEOPATHICS\LEDUM PALUSTRE TWIG\PSEUDOGNAPHALIUM OBTUSIFOLIUM
  10. CAFFEINE [Suspect]
     Active Substance: CAFFEINE
  11. CYANOCOBALAMIN [Suspect]
     Active Substance: CYANOCOBALAMIN

REACTIONS (2)
  - Off label use [Fatal]
  - Death [Fatal]
